FAERS Safety Report 4712880-0 (Version None)
Quarter: 2005Q3

REPORT INFORMATION
  Report Type: 
  Country: None (occurrence: None)
  Receive Date: 20050711
  Receipt Date: 20050627
  Transmission Date: 20060218
  Serious: Yes (Hospitalization)
  Sender: FDA-Public Use
  Company Number: 2005087113

PATIENT
  Age: 11 Year
  Sex: Female
  Weight: 38 kg

DRUGS (3)
  1. NEURONTIN [Suspect]
     Indication: EPILEPSY
     Dosage: 900 MG (300 MG, 3 IN 1 D)
     Dates: start: 20050501, end: 20050610
  2. TOPIRAMATE [Concomitant]
  3. URBANYL (CLOBAZAM) [Concomitant]

REACTIONS (7)
  - CRYING [None]
  - FEAR [None]
  - HALLUCINATION, VISUAL [None]
  - HYPERTONIA [None]
  - MIDDLE INSOMNIA [None]
  - PALLOR [None]
  - PUPIL FIXED [None]
